FAERS Safety Report 24412627 (Version 3)
Quarter: 2025Q2

REPORT INFORMATION
  Report Type: Spontaneous
  Country: IE (occurrence: IE)
  Receive Date: 20241008
  Receipt Date: 20250626
  Transmission Date: 20250716
  Serious: Yes (Death, Hospitalization, Other)
  Sender: BAUSCH AND LOMB
  Company Number: None

PATIENT
  Age: 27 Year
  Sex: Female
  Weight: 85 kg

DRUGS (4)
  1. METFORMIN HYDROCHLORIDE [Suspect]
     Active Substance: METFORMIN HYDROCHLORIDE
     Indication: Diabetes mellitus
     Route: 065
  2. QUETIAPINE FUMARATE [Suspect]
     Active Substance: QUETIAPINE FUMARATE
     Indication: Product used for unknown indication
     Route: 065
  3. ACETAMINOPHEN [Suspect]
     Active Substance: ACETAMINOPHEN
     Indication: Product used for unknown indication
     Route: 048
     Dates: start: 20240911, end: 20240912
  4. SEMAGLUTIDE [Concomitant]
     Active Substance: SEMAGLUTIDE
     Indication: Type 2 diabetes mellitus

REACTIONS (1)
  - Acute hepatic failure [Fatal]

NARRATIVE: CASE EVENT DATE: 20240912
